FAERS Safety Report 9798339 (Version 1)
Quarter: 2014Q1

REPORT INFORMATION
  Report Type: Spontaneous
  Country: US (occurrence: None)
  Receive Date: 20140102
  Receipt Date: 20140102
  Transmission Date: 20141002
  Serious: Yes (Other)
  Sender: FDA-Public Use
  Company Number: None

PATIENT
  Age: 55 Year
  Sex: Male

DRUGS (2)
  1. XELJANZ 5 MG PFIZER [Suspect]
     Indication: RHEUMATOID ARTHRITIS
     Route: 048
  2. METHYLPREDNISOLONE [Concomitant]

REACTIONS (2)
  - Abdominal discomfort [None]
  - Diarrhoea [None]
